FAERS Safety Report 19826944 (Version 1)
Quarter: 2021Q3

REPORT INFORMATION
  Report Type: Report from Study
  Country: BR (occurrence: BR)
  Receive Date: 20210914
  Receipt Date: 20210914
  Transmission Date: 20211014
  Serious: Yes (Other)
  Sender: FDA-Public Use
  Company Number: NVSC2021BR205390

PATIENT
  Sex: Male

DRUGS (2)
  1. ADALIMUMAB [Suspect]
     Active Substance: ADALIMUMAB
     Indication: PRODUCT USED FOR UNKNOWN INDICATION
     Dosage: UNK
     Route: 065
  2. METHOTREXATE. [Suspect]
     Active Substance: METHOTREXATE
     Indication: PSORIASIS
     Dosage: UNK
     Route: 065

REACTIONS (9)
  - Liver injury [Unknown]
  - Psoriasis [Unknown]
  - Blister [Unknown]
  - Drug ineffective [Unknown]
  - Erythema [Unknown]
  - Stress [Unknown]
  - Skin burning sensation [Unknown]
  - Emotional disorder [Unknown]
  - Skin lesion [Unknown]
